FAERS Safety Report 6521911-7 (Version None)
Quarter: 2009Q4

REPORT INFORMATION
  Report Type: 
  Country: None (occurrence: None)
  Receive Date: 20091230
  Receipt Date: 20091216
  Transmission Date: 20100525
  Serious: Yes (Death, Hospitalization)
  Sender: FDA-Public Use
  Company Number: FR-PFIZER INC-2009311424

PATIENT
  Age: 74 Year
  Sex: Female

DRUGS (6)
  1. LYRICA [Suspect]
     Route: 048
  2. STABLON [Suspect]
     Dosage: 12.5 MG, UNK
     Route: 048
  3. PREVISCAN [Suspect]
     Route: 048
  4. INIPOMP [Suspect]
     Route: 048
  5. FOSFOMYCIN [Suspect]
     Indication: SPONDYLITIS
     Route: 042
  6. FUCIDINE CAP [Suspect]
     Indication: SPONDYLITIS
     Route: 042

REACTIONS (1)
  - AGRANULOCYTOSIS [None]
